FAERS Safety Report 9562292 (Version 2)
Quarter: 2013Q3

REPORT INFORMATION
  Report Type: Report from Study
  Country: JP (occurrence: JP)
  Receive Date: 20130927
  Receipt Date: 20130927
  Transmission Date: 20140515
  Serious: Yes (Death, Life-Threatening, Other)
  Sender: FDA-Public Use
  Company Number: JP-SANOFI-AVENTIS-THYM-1003716

PATIENT
  Age: 57 Year
  Sex: Female
  Weight: 42 kg

DRUGS (16)
  1. THYMOGLOBULINE [Suspect]
     Indication: BONE MARROW CONDITIONING REGIMEN
     Dosage: 50 MG, QD
     Route: 065
     Dates: start: 20120623, end: 20120623
  2. METHYLPREDNISOLONE SODIUM SUCCINATE [Suspect]
     Indication: PROPHYLAXIS
     Dosage: UNK
     Route: 065
     Dates: start: 20120623, end: 20120623
  3. TACROLIMUS [Suspect]
     Indication: PRODUCT USED FOR UNKNOWN INDICATION
     Dosage: UNK
     Route: 065
  4. METHOTREXATE [Suspect]
     Indication: PRODUCT USED FOR UNKNOWN INDICATION
     Dosage: UNK
     Route: 065
  5. ALL OTHER THERAPEUTIC PRODUCTS [Suspect]
     Indication: ACUTE MYELOID LEUKAEMIA RECURRENT
     Dosage: UNK
     Route: 065
     Dates: start: 201210, end: 20130104
  6. FLUDARABINE PHOSPHATE [Concomitant]
     Indication: ACUTE MYELOID LEUKAEMIA
     Dosage: UNK
     Route: 065
     Dates: start: 20120623, end: 20120627
  7. GRANISETRON HYDROCHLORIDE [Concomitant]
     Indication: NAUSEA
     Dosage: UNK
     Route: 065
     Dates: start: 20120623, end: 20120625
  8. GRANISETRON HYDROCHLORIDE [Concomitant]
     Indication: VOMITING
     Dosage: UNK
     Route: 065
     Dates: start: 20120623, end: 20120625
  9. AMPHOTERICIN B [Concomitant]
     Indication: BRAIN NEOPLASM
     Dosage: UNK
     Route: 065
     Dates: start: 20120531, end: 20121001
  10. LANSOPRAZOLE [Concomitant]
     Indication: GASTROINTESTINAL ULCER MANAGEMENT
     Dosage: UNK
     Route: 065
     Dates: start: 20120614, end: 20130104
  11. LEVOTHYROXINE SODIUM [Concomitant]
     Indication: THYROIDECTOMY
     Dosage: UNK
     Route: 065
     Dates: start: 20080131, end: 20130104
  12. MYCOPHENOLATE MOFETIL [Concomitant]
     Indication: PROPHYLAXIS AGAINST GRAFT VERSUS HOST DISEASE
     Dosage: UNK
     Route: 065
     Dates: start: 20120624, end: 20120926
  13. MYCOPHENOLATE MOFETIL [Concomitant]
     Indication: PROPHYLAXIS AGAINST TRANSPLANT REJECTION
     Dosage: UNK
     Route: 065
     Dates: start: 20120624, end: 20120926
  14. BUSULFAN [Concomitant]
     Indication: PROPHYLAXIS AGAINST TRANSPLANT REJECTION
     Dosage: UNK
     Route: 065
     Dates: start: 20120626, end: 20120627
  15. URSODEOXYCHOLIC ACID [Concomitant]
     Indication: PROPHYLAXIS
     Dosage: UNK
     Route: 065
     Dates: start: 20120614, end: 20130104
  16. URSODEOXYCHOLIC ACID [Concomitant]
     Indication: PROPHYLAXIS
     Dosage: UNK
     Route: 065
     Dates: start: 20120614, end: 20130104

REACTIONS (9)
  - Acute myeloid leukaemia recurrent [Fatal]
  - Acute graft versus host disease in intestine [Unknown]
  - Chronic graft versus host disease [Unknown]
  - Leukopenia [Unknown]
  - Cytomegalovirus test positive [Recovered/Resolved]
  - Acute graft versus host disease in skin [Unknown]
  - Candida test positive [Not Recovered/Not Resolved]
  - Corynebacterium sepsis [Fatal]
  - Mucous membrane disorder [Recovered/Resolved]
